FAERS Safety Report 20649301 (Version 1)
Quarter: 2022Q1

REPORT INFORMATION
  Report Type: Other
  Country: IN (occurrence: None)
  Receive Date: 20220329
  Receipt Date: 20220329
  Transmission Date: 20220423
  Serious: Yes (Other)
  Sender: FDA-Public Use
  Company Number: IN-ROCHE-3056552

PATIENT
  Sex: Male

DRUGS (1)
  1. TECENTRIQ [Suspect]
     Active Substance: ATEZOLIZUMAB
     Indication: Non-small cell lung cancer metastatic
     Route: 042

REACTIONS (2)
  - Dyspnoea [Unknown]
  - Oxygen saturation decreased [Unknown]
